FAERS Safety Report 5337027-1 (Version None)
Quarter: 2007Q2

REPORT INFORMATION
  Report Type: 
  Country: None (occurrence: None)
  Receive Date: 20070523
  Receipt Date: 20070507
  Transmission Date: 20071010
  Serious: Yes (Hospitalization)
  Sender: FDA-Public Use
  Company Number: 6033051

PATIENT
  Age: 62 Year
  Sex: Male

DRUGS (4)
  1. THYROZOL (TABLET) (THIAMAZOLE) [Suspect]
     Indication: DRUG USE FOR UNKNOWN INDICATION
     Dosage: (20 MG THREE OR FOUR TIMES DAILY) ORAL
     Route: 048
     Dates: start: 20070203
  2. SU-011, 248 (50 MG) (SUNITINIB) [Suspect]
     Indication: DRUG USE FOR UNKNOWN INDICATION
     Dosage: (50 MG CYCLICAL OD, 4 WEEKS ON / 2 WEEKS) ORAL
     Route: 048
     Dates: start: 20070118
  3. LISIPRIL (LISINOPRIL) [Concomitant]
  4. LISINOPRIL [Concomitant]

REACTIONS (2)
  - ASTHENIA [None]
  - ATRIAL FIBRILLATION [None]
